FAERS Safety Report 16960019 (Version 1)
Quarter: 2019Q4

REPORT INFORMATION
  Report Type: Spontaneous
  Country: US (occurrence: US)
  Receive Date: 20191025
  Receipt Date: 20191025
  Transmission Date: 20200122
  Serious: No
  Sender: FDA-Public Use
  Company Number: US-SUNOVION-2019SUN004346

PATIENT

DRUGS (1)
  1. LATUDA [Suspect]
     Active Substance: LURASIDONE HYDROCHLORIDE
     Indication: BIPOLAR I DISORDER
     Dosage: UNK
     Route: 048

REACTIONS (7)
  - Memory impairment [Unknown]
  - Emotional distress [Unknown]
  - Fear [Unknown]
  - Speech disorder [Unknown]
  - Hypoaesthesia [Unknown]
  - Drug hypersensitivity [Unknown]
  - Dyskinesia [Unknown]
